FAERS Safety Report 8147061-4 (Version None)
Quarter: 2012Q1

REPORT INFORMATION
  Report Type: 
  Country: None (occurrence: None)
  Receive Date: 20120218
  Receipt Date: 20110201
  Transmission Date: 20120608
  Serious: No
  Sender: FDA-Public Use
  Company Number: US-ALLERGAN-1100186US

PATIENT
  Age: 37 Year
  Sex: Female
  Weight: 63.492 kg

DRUGS (2)
  1. JUVEDERM ULTRA [Concomitant]
     Indication: SKIN WRINKLING
     Dosage: UNK
     Dates: start: 20101222, end: 20101222
  2. BOTOX COSMETIC [Suspect]
     Indication: SKIN WRINKLING
     Dosage: 50 UNITS, SINGLE
     Route: 030
     Dates: start: 20101222, end: 20101222

REACTIONS (2)
  - FACIAL PARESIS [None]
  - SKIN DISORDER [None]
